FAERS Safety Report 17573111 (Version 1)
Quarter: 2020Q1

REPORT INFORMATION
  Report Type: Spontaneous
  Country: FR (occurrence: FR)
  Receive Date: 20200323
  Receipt Date: 20200323
  Transmission Date: 20200409
  Serious: Yes (Other)
  Sender: FDA-Public Use
  Company Number: FR-MYLANLABS-2020M1030835

PATIENT
  Age: 87 Year
  Sex: Male

DRUGS (1)
  1. RAMIPRIL MYLAN 5 MG, COMPRIM? S?CABLE [Suspect]
     Active Substance: RAMIPRIL
     Indication: BRADYCARDIA
     Dosage: 1 DOSAGE FORM, QD
     Route: 048
     Dates: start: 2020

REACTIONS (4)
  - Sudden visual loss [Unknown]
  - Deafness [Unknown]
  - Asthenia [Unknown]
  - Vomiting [Unknown]

NARRATIVE: CASE EVENT DATE: 2020
